FAERS Safety Report 16903905 (Version 1)
Quarter: 2019Q4

REPORT INFORMATION
  Report Type: Spontaneous
  Country: US (occurrence: US)
  Receive Date: 20191009
  Receipt Date: 20191009
  Transmission Date: 20200122
  Serious: Yes (Disabling, Other)
  Sender: FDA-Public Use
  Company Number: None

PATIENT
  Age: 55 Year
  Sex: Female

DRUGS (1)
  1. BENLYSTA [Suspect]
     Active Substance: BELIMUMAB
     Indication: SYSTEMIC LUPUS ERYTHEMATOSUS
     Dates: start: 20190219, end: 20190416

REACTIONS (6)
  - Fatigue [None]
  - Confusional state [None]
  - Balance disorder [None]
  - Dizziness [None]
  - Tinnitus [None]
  - Headache [None]

NARRATIVE: CASE EVENT DATE: 20190416
